FAERS Safety Report 17701955 (Version 2)
Quarter: 2020Q2

REPORT INFORMATION
  Report Type: Spontaneous
  Country: GB (occurrence: GB)
  Receive Date: 20200424
  Receipt Date: 20200427
  Transmission Date: 20200714
  Serious: Yes (Other)
  Sender: FDA-Public Use
  Company Number: GB-009507513-2004GBR006575

PATIENT
  Age: 50 Year
  Sex: Female
  Weight: 88.9 kg

DRUGS (5)
  1. MIRTAZAPINE. [Suspect]
     Active Substance: MIRTAZAPINE
     Indication: ANXIETY
     Dosage: 15 MILLIGRAM
     Route: 048
     Dates: start: 20200320, end: 20200407
  2. OMEPRAZOLE. [Concomitant]
     Active Substance: OMEPRAZOLE
     Dosage: ONLY TAKEN 2 DOSES SINCE I GOT IT ON 02.04.20
     Dates: start: 20200402
  3. FLOXACILLIN [Concomitant]
     Active Substance: FLUCLOXACILLIN
     Indication: LOWER RESPIRATORY TRACT INFECTION
     Dates: start: 20200405
  4. ACETAMINOPHEN. [Concomitant]
     Active Substance: ACETAMINOPHEN
     Dosage: NOT REGULARLY, JUST ONE OR TWO DOSES PER DAY, AND NOT EVERY DAY
  5. ORAMORPH [Concomitant]
     Active Substance: MORPHINE SULFATE
     Dosage: 5 MILLIGRAM
     Dates: start: 20200331, end: 20200331

REACTIONS (6)
  - Ocular discomfort [Recovering/Resolving]
  - Dizziness postural [Recovering/Resolving]
  - Tinnitus [Not Recovered/Not Resolved]
  - Eye pain [Recovering/Resolving]
  - Diplopia [Unknown]
  - Vision blurred [Not Recovered/Not Resolved]

NARRATIVE: CASE EVENT DATE: 20200402
